FAERS Safety Report 11689523 (Version 1)
Quarter: 2015Q4

REPORT INFORMATION
  Report Type: Spontaneous
  Country: FR (occurrence: FR)
  Receive Date: 20151102
  Receipt Date: 20151102
  Transmission Date: 20160304
  Serious: Yes (Hospitalization)
  Sender: FDA-Public Use
  Company Number: FR-PFIZER INC-2015360933

PATIENT
  Age: 7 Year
  Sex: Female

DRUGS (9)
  1. TORISEL [Suspect]
     Active Substance: TEMSIROLIMUS
     Dosage: 30 MG, DAILY
     Route: 042
     Dates: start: 20150519
  2. TORISEL [Suspect]
     Active Substance: TEMSIROLIMUS
     Dosage: 30 MG, DAILY
     Route: 042
     Dates: start: 20150526
  3. METHOTREXATE [Concomitant]
     Active Substance: METHOTREXATE
     Indication: ACUTE LYMPHOCYTIC LEUKAEMIA
     Dosage: UNK
     Route: 037
     Dates: start: 20150425, end: 20150425
  4. TORISEL [Suspect]
     Active Substance: TEMSIROLIMUS
     Dosage: 30 MG, DAILY
     Route: 042
     Dates: start: 20150512
  5. ARACYTINE [Concomitant]
     Active Substance: CYTARABINE
     Dosage: UNK
     Route: 037
     Dates: start: 20150501, end: 20150501
  6. ARACYTINE [Concomitant]
     Active Substance: CYTARABINE
     Indication: ACUTE LYMPHOCYTIC LEUKAEMIA
     Dosage: UNK
     Route: 037
     Dates: start: 20150427, end: 20150427
  7. TORISEL [Suspect]
     Active Substance: TEMSIROLIMUS
     Indication: ACUTE LYMPHOCYTIC LEUKAEMIA
     Dosage: 60 MG, DAILY
     Route: 042
     Dates: start: 20150504, end: 20150504
  8. METHOTREXATE [Concomitant]
     Active Substance: METHOTREXATE
     Dosage: UNK
     Route: 037
     Dates: start: 20150429, end: 20150429
  9. VINCRISTINE [Concomitant]
     Active Substance: VINCRISTINE
     Indication: ACUTE LYMPHOCYTIC LEUKAEMIA
     Dosage: UNK, WEEKLY
     Dates: start: 20150428

REACTIONS (3)
  - Dyslipidaemia [Recovering/Resolving]
  - Hepatitis [Recovering/Resolving]
  - Product use issue [Unknown]

NARRATIVE: CASE EVENT DATE: 20150505
